FAERS Safety Report 9072507 (Version 1)
Quarter: 2013Q1

REPORT INFORMATION
  Report Type: Report from Study
  Country: US (occurrence: US)
  Receive Date: 20130129
  Receipt Date: 20130129
  Transmission Date: 20140127
  Serious: No
  Sender: FDA-Public Use
  Company Number: US-ABBOTT-12P-163-0940541-00

PATIENT
  Age: 55 Year
  Sex: Male

DRUGS (13)
  1. HUMIRA 40 MG/0.8 ML PEN [Suspect]
     Indication: RHEUMATOID ARTHRITIS
     Dates: start: 201111
  2. HUMULIN [Concomitant]
     Indication: PRODUCT USED FOR UNKNOWN INDICATION
     Dosage: 7/30, 70 UNITS IN AM AND 48 UNITS IN PM
  3. METHOCARBAMOL [Concomitant]
     Indication: BACK PAIN
     Dosage: 750-2 EVERY 4 TO 6 HOURS
  4. SULFASALAZINE DR [Concomitant]
     Indication: RHEUMATOID ARTHRITIS
  5. INDOMETHACIN [Concomitant]
     Indication: ARTHRITIS
  6. PREDNISONE [Concomitant]
     Indication: PRODUCT USED FOR UNKNOWN INDICATION
     Dosage: 1MG DAILY
  7. HYDROXYCHLOROQUINE [Concomitant]
     Indication: ARTHRITIS
  8. BABY ASPIRIN [Concomitant]
     Indication: PRODUCT USED FOR UNKNOWN INDICATION
  9. IBUPROFEN [Concomitant]
     Indication: PRODUCT USED FOR UNKNOWN INDICATION
     Dosage: AS NEEDED
  10. HYDROCODONE [Concomitant]
     Indication: PAIN
     Dosage: 10/500-6 DAILY
  11. HYDROCLOROXIDE [Concomitant]
     Indication: BLOOD PRESSURE
  12. LISINOPRIL [Concomitant]
     Indication: HYPERTENSION
     Dosage: 20MG DAILY
  13. PRAVASTATIN SODIUM [Concomitant]
     Indication: BLOOD CHOLESTEROL INCREASED
     Dosage: 80MG DAILY

REACTIONS (1)
  - Depression [Recovering/Resolving]
